FAERS Safety Report 15746106 (Version 1)
Quarter: 2018Q4

REPORT INFORMATION
  Report Type: Spontaneous
  Country: US (occurrence: US)
  Receive Date: 20181220
  Receipt Date: 20181220
  Transmission Date: 20190205
  Serious: Yes (Other)
  Sender: FDA-Public Use
  Company Number: US-JAZZ-2018-US-018290

PATIENT
  Age: 38 Year
  Sex: Male
  Weight: 111.11 kg

DRUGS (1)
  1. PRIALT [Suspect]
     Active Substance: ZICONOTIDE ACETATE
     Indication: PAIN
     Dosage: 2.5 MG SINGLE DOSE(OFF LABEL)
     Route: 065
     Dates: start: 20181205

REACTIONS (4)
  - Headache [Unknown]
  - Off label use [Unknown]
  - Pain [Unknown]
  - Cerebrospinal fluid leakage [Not Recovered/Not Resolved]

NARRATIVE: CASE EVENT DATE: 201812
